FAERS Safety Report 9181074 (Version 1)
Quarter: 2013Q1

REPORT INFORMATION
  Report Type: Spontaneous
  Country: US (occurrence: None)
  Receive Date: 20130320
  Receipt Date: 20130320
  Transmission Date: 20140127
  Serious: Yes (Hospitalization, Other)
  Sender: FDA-Public Use
  Company Number: JPI-P-030497

PATIENT
  Age: 61 Year
  Sex: Female
  Weight: 90.72 kg

DRUGS (3)
  1. XYREM [Suspect]
     Indication: CATAPLEXY
     Dosage: 4.5 GM (2.25 GM, 2 IN 1 D), ORAL
     Route: 048
     Dates: start: 20030428
  2. DYAZIDE [Concomitant]
  3. VITAMIN D [Concomitant]

REACTIONS (6)
  - Fall [None]
  - Foot fracture [None]
  - Joint injury [None]
  - Memory impairment [None]
  - Pain [None]
  - Weight decreased [None]
